FAERS Safety Report 7239320-4 (Version None)
Quarter: 2011Q1

REPORT INFORMATION
  Report Type: 
  Country: None (occurrence: None)
  Receive Date: 20110121
  Receipt Date: 20110119
  Transmission Date: 20110831
  Serious: Yes (Other)
  Sender: FDA-Public Use
  Company Number: US-AMGEN-USASP2011003620

PATIENT

DRUGS (2)
  1. CORTICOSTEROIDS [Concomitant]
     Dosage: UNK
     Dates: start: 20030101
  2. NPLATE [Suspect]
     Indication: THROMBOCYTOPENIA
     Dates: start: 20100214, end: 20100701

REACTIONS (2)
  - HYPOCHROMIC ANAEMIA [None]
  - DRUG INEFFECTIVE [None]
